FAERS Safety Report 15483490 (Version 1)
Quarter: 2018Q4

REPORT INFORMATION
  Report Type: Spontaneous
  Country: JP (occurrence: JP)
  Receive Date: 20181010
  Receipt Date: 20181010
  Transmission Date: 20190205
  Serious: Yes (Other)
  Sender: FDA-Public Use
  Company Number: JP-ELI_LILLY_AND_COMPANY-JP201810000014

PATIENT
  Age: 58 Year
  Sex: Male

DRUGS (8)
  1. IRINOTECAN HYDROCHLORIDE. [Concomitant]
     Active Substance: IRINOTECAN HYDROCHLORIDE
     Dosage: 150 MG/M2, UNK
  2. CYRAMZA [Suspect]
     Active Substance: RAMUCIRUMAB
     Indication: RECTOSIGMOID CANCER METASTATIC
     Dosage: 8 MG/KG, UNK
     Route: 041
  3. FLUOROURACIL. [Concomitant]
     Active Substance: FLUOROURACIL
     Dosage: 2400 MG/M2, UNK
     Route: 041
  4. FLUOROURACIL. [Concomitant]
     Active Substance: FLUOROURACIL
     Indication: RECTOSIGMOID CANCER METASTATIC
     Dosage: 400 MG/M2, UNK
     Route: 040
  5. LEVOFOLINATE CALCIUM [Concomitant]
     Active Substance: LEVOLEUCOVORIN CALCIUM
     Indication: RECTOSIGMOID CANCER METASTATIC
  6. IRINOTECAN HYDROCHLORIDE. [Concomitant]
     Active Substance: IRINOTECAN HYDROCHLORIDE
     Dosage: 120 MG/M2, UNK
  7. IRINOTECAN HYDROCHLORIDE. [Concomitant]
     Active Substance: IRINOTECAN HYDROCHLORIDE
     Indication: RECTOSIGMOID CANCER METASTATIC
     Dosage: 180 MG/M2, UNK
  8. FLUOROURACIL. [Concomitant]
     Active Substance: FLUOROURACIL
     Dosage: 2000 MG/M2, UNK
     Route: 041

REACTIONS (6)
  - Malignant neoplasm progression [Unknown]
  - Diarrhoea [Unknown]
  - Large intestinal haemorrhage [Unknown]
  - Neutrophil count decreased [Unknown]
  - Anaemia [Unknown]
  - Epistaxis [Unknown]
